FAERS Safety Report 4970673-3 (Version None)
Quarter: 2006Q2

REPORT INFORMATION
  Report Type: 
  Country: None (occurrence: None)
  Receive Date: 20060406
  Receipt Date: 20060111
  Transmission Date: 20061013
  Serious: No
  Sender: FDA-Public Use
  Company Number: ID200603005581

PATIENT
  Sex: Male

DRUGS (1)
  1. CIALIS [Suspect]
     Indication: ERECTILE DYSFUNCTION
     Dosage: 20 MG, AS  NEEDED, ORAL
     Route: 048

REACTIONS (3)
  - EYE DISORDER [None]
  - RETINAL DISORDER [None]
  - VISUAL DISTURBANCE [None]
